FAERS Safety Report 8911614 (Version 1)
Quarter: 2012Q4

REPORT INFORMATION
  Report Type: 
  Country: SE (occurrence: SE)
  Receive Date: 20121116
  Receipt Date: 20121116
  Transmission Date: 20130627
  Serious: Yes (Hospitalization, Other)
  Sender: FDA-Public Use
  Company Number: SE-PFIZER INC-2012283074

PATIENT
  Age: 67 Year
  Sex: Female
  Weight: 92.5 kg

DRUGS (8)
  1. GENOTROPIN [Suspect]
     Dosage: 0.4 mg, 1x/day, 7 injections/week
     Route: 058
     Dates: start: 19971209
  2. BRICANYL [Concomitant]
     Indication: ASTHMA
     Dosage: UNK
     Dates: start: 19890101
  3. CORTISONE ACETATE [Concomitant]
     Indication: ACTH DECREASED
     Dosage: UNK
     Dates: start: 19891201
  4. TESTOSTERONE [Concomitant]
     Indication: LH DECREASED
     Dosage: UNK
     Dates: start: 19891201
  5. TESTOSTERONE [Concomitant]
     Indication: FSH DECREASED
  6. LEVOTHYROXINE [Concomitant]
     Indication: TSH DECREASE
     Dosage: UNK
     Dates: start: 19891201
  7. BECOTIDE [Concomitant]
     Indication: ASTHMA
     Dosage: UNK
     Dates: start: 19920101
  8. SALMETEROL [Concomitant]
     Indication: ASTHMA
     Dosage: UNK
     Dates: start: 19940101

REACTIONS (1)
  - Pneumonia [Unknown]
